FAERS Safety Report 4607683-1 (Version None)
Quarter: 2005Q1

REPORT INFORMATION
  Report Type: 
  Country: None (occurrence: None)
  Receive Date: 20050310
  Receipt Date: 20050214
  Transmission Date: 20050727
  Serious: Yes (Other)
  Sender: FDA-Public Use
  Company Number: 05-0022PO

PATIENT
  Age: 61 Year
  Sex: Female

DRUGS (2)
  1. MEFENAMIC ACID [Suspect]
     Indication: INFLAMMATION
     Dosage: 750 MG ORAL
     Route: 048
     Dates: start: 20050106
  2. EPINASTINE HYDROCHLORIDE [Suspect]
     Indication: DRUG HYPERSENSITIVITY
     Dosage: 20 MG ORAL
     Route: 048
     Dates: start: 20050109, end: 20050109

REACTIONS (8)
  - ABDOMINAL PAIN UPPER [None]
  - BLOOD PRESSURE DECREASED [None]
  - DRUG ERUPTION [None]
  - DYSPNOEA [None]
  - LOSS OF CONSCIOUSNESS [None]
  - NAUSEA [None]
  - SYNCOPE VASOVAGAL [None]
  - VOMITING [None]
